FAERS Safety Report 17326803 (Version 1)
Quarter: 2020Q1

REPORT INFORMATION
  Report Type: Spontaneous
  Country: US (occurrence: US)
  Receive Date: 20200127
  Receipt Date: 20200127
  Transmission Date: 20200409
  Serious: No
  Sender: FDA-Public Use
  Company Number: US-ABBVIE-19S-163-2741252-00

PATIENT
  Sex: Male

DRUGS (2)
  1. XTANDI [Suspect]
     Active Substance: ENZALUTAMIDE
     Indication: PROSTATIC SPECIFIC ANTIGEN INCREASED
     Route: 048
     Dates: start: 201811
  2. LUPRON DEPOT [Suspect]
     Active Substance: LEUPROLIDE ACETATE
     Indication: PROSTATIC SPECIFIC ANTIGEN INCREASED
     Route: 065
     Dates: start: 200909

REACTIONS (2)
  - Drug ineffective [Unknown]
  - Hot flush [Unknown]
